FAERS Safety Report 4435283-5 (Version None)
Quarter: 2004Q3

REPORT INFORMATION
  Report Type: 
  Country: None (occurrence: None)
  Receive Date: 20040826
  Receipt Date: 20040813
  Transmission Date: 20050211
  Serious: Yes (Hospitalization, Other)
  Sender: FDA-Public Use
  Company Number: HQWYE379118AUG04

PATIENT
  Age: 68 Year
  Sex: Female

DRUGS (11)
  1. TAZOBAC (PIPERACILLIN/TAZOBACTAM, INJECTION) [Suspect]
     Indication: PNEUMONIA BACTERIAL
     Dosage: INTRAVENOUS
     Route: 042
     Dates: start: 20031101, end: 20031101
  2. ARAVA [Concomitant]
  3. CALCORT (DEFLAZACORT) [Concomitant]
  4. DALTEPARIN SODIUM (HEPARIN-FRACTION SODIUIM SALT) [Concomitant]
  5. ALDACTONE [Concomitant]
  6. ATORVASTATIN CALCIUM [Concomitant]
  7. SEREVENT [Concomitant]
  8. AXOTIDE (FLUTICASONE PROPIONATE) [Concomitant]
  9. PANTOZOL (PANTOPRAZOLE SODIUM) [Concomitant]
  10. FOSAMAX [Concomitant]
  11. POTASSIUM CHLORIDE [Concomitant]

REACTIONS (8)
  - ACUTE PRERENAL FAILURE [None]
  - ANOREXIA [None]
  - ASTHENIA [None]
  - CLOSTRIDIUM COLITIS [None]
  - CONDITION AGGRAVATED [None]
  - FATIGUE [None]
  - NIGHT SWEATS [None]
  - WEIGHT DECREASED [None]
